FAERS Safety Report 6281954-8 (Version None)
Quarter: 2009Q3

REPORT INFORMATION
  Report Type: 
  Country: None (occurrence: None)
  Receive Date: 20090724
  Receipt Date: 20090722
  Transmission Date: 20100115
  Serious: Yes (Hospitalization)
  Sender: FDA-Public Use
  Company Number: FR-BRISTOL-MYERS SQUIBB COMPANY-14694491

PATIENT
  Age: 45 Year
  Sex: Female
  Weight: 61 kg

DRUGS (6)
  1. CETUXIMAB [Suspect]
     Indication: CERVIX CARCINOMA
     Dosage: RECENT INFUSION INFUSION ON 29JUN09
     Route: 042
     Dates: start: 20090602
  2. CISPLATIN [Suspect]
     Indication: CERVIX CARCINOMA
     Dosage: RECENT INFUSION INFUSION ON 29JUN09
     Route: 042
     Dates: start: 20090602
  3. RADIOTHERAPY [Suspect]
     Indication: CERVIX CARCINOMA
     Dosage: 1DF-1.8GY. LAST DOSE-1.8GY RECENT ADMINISTRATION ON 02JUL09 CUMULATIVE DOSE: 30.6GY
     Dates: start: 20090608
  4. DOXYCYCLINE [Concomitant]
     Indication: ACNE
     Route: 048
     Dates: start: 20090616, end: 20090625
  5. TIORFAN [Concomitant]
     Indication: DIARRHOEA
     Route: 048
     Dates: start: 20090630
  6. IMODIUM [Concomitant]
     Indication: DIARRHOEA
     Route: 048
     Dates: start: 20090601

REACTIONS (3)
  - DIARRHOEA [None]
  - VOMITING [None]
  - WEIGHT DECREASED [None]
